FAERS Safety Report 8105193-0 (Version None)
Quarter: 2012Q1

REPORT INFORMATION
  Report Type: 
  Country: None (occurrence: None)
  Receive Date: 20120201
  Receipt Date: 20120126
  Transmission Date: 20120608
  Serious: Yes (Hospitalization)
  Sender: FDA-Public Use
  Company Number: DE-SANOFI-AVENTIS-2012SA000173

PATIENT
  Age: 83 Year
  Sex: Male

DRUGS (8)
  1. XIPAMIDE [Concomitant]
     Route: 048
  2. BISOPROLOL [Concomitant]
     Route: 048
  3. MARCUMAR [Concomitant]
     Route: 048
  4. RAMIPRIL [Concomitant]
     Route: 048
     Dates: start: 20111001, end: 20111001
  5. DIURETICS [Concomitant]
     Route: 048
     Dates: end: 20100601
  6. MULTAQ [Suspect]
     Indication: ATRIAL FIBRILLATION
     Route: 048
     Dates: start: 20100420
  7. MULTAQ [Suspect]
     Route: 048
     Dates: start: 20100101, end: 20111201
  8. ATORVASTATIN [Concomitant]
     Route: 048

REACTIONS (7)
  - PULMONARY OEDEMA [None]
  - ASTHENIA [None]
  - GAIT DISTURBANCE [None]
  - HEPATIC ENZYME INCREASED [None]
  - RENAL FAILURE CHRONIC [None]
  - BLOOD CREATININE INCREASED [None]
  - CARDIAC FAILURE [None]
